FAERS Safety Report 8419770-0 (Version None)
Quarter: 2012Q2

REPORT INFORMATION
  Report Type: 
  Country: None (occurrence: None)
  Receive Date: 20120607
  Receipt Date: 20120605
  Transmission Date: 20120825
  Serious: Yes (Death, Hospitalization, Other)
  Sender: FDA-Public Use
  Company Number: PHHY2012GB048042

PATIENT
  Age: 82 Year
  Sex: Female

DRUGS (1)
  1. WARFARIN SODIUM [Suspect]
     Indication: PULMONARY EMBOLISM

REACTIONS (10)
  - DERMATITIS BULLOUS [None]
  - SKIN NECROSIS [None]
  - RASH [None]
  - SKIN PLAQUE [None]
  - ERYTHEMA [None]
  - ESCHAR [None]
  - PAIN OF SKIN [None]
  - MULTI-ORGAN FAILURE [None]
  - SKIN ODOUR ABNORMAL [None]
  - SEPSIS [None]
